FAERS Safety Report 6808496-2 (Version None)
Quarter: 2010Q2

REPORT INFORMATION
  Report Type: 
  Country: None (occurrence: None)
  Receive Date: 20100629
  Receipt Date: 20090629
  Transmission Date: 20101027
  Serious: No
  Sender: FDA-Public Use
  Company Number: US-PFIZER INC-2009227068

PATIENT
  Sex: Female

DRUGS (1)
  1. ALPRAZOLAM [Suspect]
     Indication: ANXIETY
     Dosage: 0.25 MG, AS NEEDED
     Route: 048
     Dates: start: 20060801

REACTIONS (1)
  - METABOLIC DISORDER [None]
